FAERS Safety Report 18094238 (Version 2)
Quarter: 2020Q4

REPORT INFORMATION
  Report Type: Spontaneous
  Country: US (occurrence: US)
  Receive Date: 20200730
  Receipt Date: 20201222
  Transmission Date: 20210113
  Serious: Yes (Hospitalization, Disabling, Other)
  Sender: FDA-Public Use
  Company Number: US-PURDUE-USA-2020-0159952

PATIENT
  Sex: Male

DRUGS (3)
  1. OXYCODONE HYDROCHLORIDE (SIMILAR TO NDA 22-272) [Suspect]
     Active Substance: OXYCODONE HYDROCHLORIDE
     Indication: PRODUCT USED FOR UNKNOWN INDICATION
     Route: 048
  2. OXYCONTIN [Suspect]
     Active Substance: OXYCODONE HYDROCHLORIDE
     Indication: ACQUIRED IMMUNODEFICIENCY SYNDROME
  3. OXYCONTIN [Suspect]
     Active Substance: OXYCODONE HYDROCHLORIDE
     Indication: BACK PAIN
     Dosage: UNK
     Route: 048
     Dates: start: 1999

REACTIONS (11)
  - Coronary artery occlusion [Unknown]
  - Hospitalisation [Unknown]
  - Dependence [Unknown]
  - Drug withdrawal syndrome [Unknown]
  - Gait inability [Unknown]
  - Imprisonment [Unknown]
  - Hallucination [Unknown]
  - Irritability [Unknown]
  - Aggression [Unknown]
  - Overdose [Unknown]
  - Hypoaesthesia [None]

NARRATIVE: CASE EVENT DATE: 1981
